FAERS Safety Report 4521142-6 (Version None)
Quarter: 2004Q4

REPORT INFORMATION
  Report Type: 
  Country: None (occurrence: None)
  Receive Date: 20041206
  Receipt Date: 20041108
  Transmission Date: 20050328
  Serious: Yes (Hospitalization)
  Sender: FDA-Public Use
  Company Number: M2004-1798

PATIENT
  Age: 41 Year
  Sex: Female

DRUGS (2)
  1. PROPRANOLOL [Suspect]
     Indication: ANXIETY
     Dosage: ORAL
     Route: 048
  2. TETRALYSAL, UNK, UNKNOWN MANUFACTURER [Suspect]
     Indication: ROSACEA
     Dosage: 1 OD, ORAL
     Route: 048
     Dates: start: 20030716, end: 20040801

REACTIONS (5)
  - ASPIRATION [None]
  - GRAND MAL CONVULSION [None]
  - HYPONATRAEMIA [None]
  - PNEUMONITIS [None]
  - VOMITING [None]
